FAERS Safety Report 23936932 (Version 1)
Quarter: 2024Q2

REPORT INFORMATION
  Report Type: Spontaneous
  Country: US (occurrence: None)
  Receive Date: 20240603
  Receipt Date: 20240603
  Transmission Date: 20240716
  Serious: Yes (Death)
  Sender: FDA-Public Use
  Company Number: None

PATIENT
  Age: 93 Year
  Sex: Female

DRUGS (1)
  1. RETACRIT [Suspect]
     Active Substance: EPOETIN ALFA-EPBX
     Indication: Nephrogenic anaemia
     Dosage: OTHER QUANTITY : 20,000 UNITS;?FREQUENCY : WEEKLY;?
     Dates: start: 20240509

REACTIONS (1)
  - Death [None]

NARRATIVE: CASE EVENT DATE: 20240530
